FAERS Safety Report 12623325 (Version 1)
Quarter: 2016Q3

REPORT INFORMATION
  Report Type: Spontaneous
  Country: ES (occurrence: ES)
  Receive Date: 20160804
  Receipt Date: 20160804
  Transmission Date: 20161109
  Serious: Yes (Life-Threatening, Hospitalization)
  Sender: FDA-Public Use
  Company Number: ES-MYLANLABS-2016M1031123

PATIENT

DRUGS (5)
  1. ZYPREXA [Concomitant]
     Active Substance: OLANZAPINE
     Indication: SCHIZOPHRENIA
     Dosage: 15 MG, QD
     Route: 048
     Dates: start: 20130812, end: 20150608
  2. ANTABUS [Concomitant]
     Active Substance: DISULFIRAM
     Indication: ALCOHOLISM
     Dosage: UNK
     Route: 065
     Dates: start: 20150609, end: 20150706
  3. XEPLION [Interacting]
     Active Substance: PALIPERIDONE PALMITATE
     Indication: SCHIZOPHRENIA
     Dosage: 75 MG, MONTHLY
     Route: 030
     Dates: start: 20150609, end: 20150703
  4. TOPAMAX [Concomitant]
     Active Substance: TOPIRAMATE
     Indication: SCHIZOPHRENIA
     Dosage: 200 MG, UNK
     Route: 048
     Dates: start: 20150609, end: 20150706
  5. OLANZAPINE MYLAN [Suspect]
     Active Substance: OLANZAPINE
     Indication: SCHIZOPHRENIA
     Dosage: 20 MG, QD
     Route: 048
     Dates: start: 20150609, end: 20150706

REACTIONS (2)
  - Drug interaction [Unknown]
  - Neuroleptic malignant syndrome [Recovered/Resolved]

NARRATIVE: CASE EVENT DATE: 20150706
